FAERS Safety Report 4934254-X (Version None)
Quarter: 2006Q1

REPORT INFORMATION
  Report Type: 
  Country: None (occurrence: None)
  Receive Date: 20060307
  Receipt Date: 20060224
  Transmission Date: 20060701
  Serious: Yes (Hospitalization)
  Sender: FDA-Public Use
  Company Number: US-AVENTIS-200611788US

PATIENT
  Sex: Male

DRUGS (9)
  1. KETEK [Suspect]
     Indication: UPPER RESPIRATORY TRACT INFECTION
     Route: 048
     Dates: start: 20060223, end: 20060224
  2. MESTINON [Concomitant]
     Dosage: DOSE: UNKNOWN
  3. LASIX [Concomitant]
     Dosage: DOSE: UNKNOWN
  4. DIGOXIN [Concomitant]
     Dosage: DOSE: UNKNOWN
  5. PROTONIX [Concomitant]
     Dosage: DOSE: UNKNOWN
  6. SYNTHROID [Concomitant]
     Dosage: DOSE: UNKNOWN
  7. CLARITIN [Concomitant]
     Dosage: DOSE: UNKNOWN
  8. COREG [Concomitant]
     Dosage: DOSE: UNKNOWN
  9. IMDUR [Concomitant]
     Dosage: DOSE: UNKNOWN

REACTIONS (1)
  - RESPIRATORY DISTRESS [None]
